FAERS Safety Report 11795629 (Version 1)
Quarter: 2015Q4

REPORT INFORMATION
  Report Type: Report from Study
  Country: DE (occurrence: DE)
  Receive Date: 20151202
  Receipt Date: 20151202
  Transmission Date: 20160305
  Serious: Yes (Other)
  Sender: FDA-Public Use
  Company Number: DE-009507513-1009USA05142

PATIENT
  Age: 62 Year
  Sex: Male
  Weight: 71 kg

DRUGS (5)
  1. MK-3009 [Suspect]
     Active Substance: DAPTOMYCIN
     Indication: INCISION SITE INFECTION
     Dosage: 4.9 MG/KG, QD
     Route: 042
     Dates: end: 2007
  2. MK-0787 [Concomitant]
  3. VANCOMYCIN [Concomitant]
     Active Substance: VANCOMYCIN
  4. CIPROFLOXACIN. [Concomitant]
     Active Substance: CIPROFLOXACIN
  5. MEROPENEM. [Concomitant]
     Active Substance: MEROPENEM

REACTIONS (1)
  - Eosinophilic pneumonia [Recovered/Resolved]
